FAERS Safety Report 5580641-9 (Version None)
Quarter: 2008Q1

REPORT INFORMATION
  Report Type: 
  Country: None (occurrence: None)
  Receive Date: 20080103
  Receipt Date: 20071226
  Transmission Date: 20080703
  Serious: Yes (Hospitalization, Other)
  Sender: FDA-Public Use
  Company Number: US-PFIZER INC-2007037503

PATIENT
  Sex: Female
  Weight: 44.5 kg

DRUGS (3)
  1. CELEBREX [Suspect]
     Indication: PAIN
  2. BEXTRA [Suspect]
     Indication: PAIN
     Dates: start: 20040201
  3. VIOXX [Suspect]
     Indication: PAIN

REACTIONS (3)
  - ANXIETY [None]
  - DEPRESSION [None]
  - ISCHAEMIC STROKE [None]
